FAERS Safety Report 13227771 (Version 1)
Quarter: 2017Q1

REPORT INFORMATION
  Report Type: Spontaneous
  Country: US (occurrence: US)
  Receive Date: 20170213
  Receipt Date: 20170213
  Transmission Date: 20170428
  Serious: Yes (Other)
  Sender: FDA-Public Use
  Company Number: ALCN2017US001256

PATIENT
  Age: 59 Year
  Sex: Female
  Weight: 65.76 kg

DRUGS (2)
  1. BSS [Suspect]
     Active Substance: CALCIUM CHLORIDE\MAGNESIUM CHLORIDE\POTASSIUM CHLORIDE\SODIUM ACETATE\SODIUM CHLORIDE\SODIUM CITRATE
     Indication: EYE IRRIGATION
     Route: 047
  2. GENTAMYCIN [Suspect]
     Active Substance: GENTAMICIN
     Indication: INTRAOPERATIVE CARE
     Route: 047

REACTIONS (2)
  - Astigmatism [Recovered/Resolved]
  - Myopia [Recovered/Resolved]

NARRATIVE: CASE EVENT DATE: 20161221
